FAERS Safety Report 19710600 (Version 1)
Quarter: 2021Q3

REPORT INFORMATION
  Report Type: Spontaneous
  Country: US (occurrence: US)
  Receive Date: 20210817
  Receipt Date: 20210817
  Transmission Date: 20211014
  Serious: Yes (Hospitalization)
  Sender: FDA-Public Use
  Company Number: US-BRISTOL-MYERS SQUIBB COMPANY-BMS-2021-077497

PATIENT
  Sex: Female
  Weight: 84 kg

DRUGS (5)
  1. DEXAMETHASONE. [Suspect]
     Active Substance: DEXAMETHASONE
     Indication: PLASMA CELL MYELOMA
     Dosage: UNK
     Route: 065
     Dates: start: 20210702
  2. METHYLPREDNISOLONE. [Suspect]
     Active Substance: METHYLPREDNISOLONE
     Indication: PLASMA CELL MYELOMA
     Dosage: 40 MILLIGRAM, QOD
     Route: 048
     Dates: start: 20210315, end: 20210630
  3. POMALIDOMIDE [Suspect]
     Active Substance: POMALIDOMIDE
     Indication: PLASMA CELL MYELOMA
     Dosage: UNK
     Route: 065
     Dates: start: 20210702
  4. ELOTUZUMAB. [Suspect]
     Active Substance: ELOTUZUMAB
     Indication: PLASMA CELL MYELOMA
     Dosage: UNK
     Route: 065
     Dates: start: 20210702
  5. RUXOLITINIB [Suspect]
     Active Substance: RUXOLITINIB
     Indication: PLASMA CELL MYELOMA
     Dosage: 15 MILLIGRAM, BID
     Route: 048
     Dates: start: 20210315, end: 20210630

REACTIONS (3)
  - Tremor [Unknown]
  - Fatigue [Unknown]
  - Muscular weakness [Unknown]

NARRATIVE: CASE EVENT DATE: 20210710
